FAERS Safety Report 14163384 (Version 1)
Quarter: 2017Q4

REPORT INFORMATION
  Report Type: Spontaneous
  Country: CN (occurrence: CN)
  Receive Date: 20171107
  Receipt Date: 20171107
  Transmission Date: 20180321
  Serious: Yes (Other)
  Sender: FDA-Public Use
  Company Number: CN-ASTRAZENECA-2017SF12625

PATIENT
  Age: 11328 Day
  Sex: Female

DRUGS (2)
  1. QUETIAPINE FUMARATE. [Suspect]
     Active Substance: QUETIAPINE FUMARATE
     Indication: SCHIZOPHRENIA
     Route: 048
     Dates: start: 20170913, end: 20170927
  2. HALOPERIDOL. [Suspect]
     Active Substance: HALOPERIDOL
     Indication: SCHIZOPHRENIA
     Route: 030
     Dates: start: 20170914, end: 20170927

REACTIONS (1)
  - Muscle tightness [Recovering/Resolving]

NARRATIVE: CASE EVENT DATE: 20170916
